FAERS Safety Report 5906237-4 (Version None)
Quarter: 2008Q4

REPORT INFORMATION
  Report Type: 
  Country: None (occurrence: None)
  Receive Date: 20081002
  Receipt Date: 20080923
  Transmission Date: 20090506
  Serious: Yes (Hospitalization)
  Sender: FDA-Public Use
  Company Number: CZ-PURDUE-DEU_2008_0004416

PATIENT
  Age: 67 Year
  Sex: Female
  Weight: 57 kg

DRUGS (5)
  1. OXY/NALOXONE VS OXYCODONE [Suspect]
     Indication: CANCER PAIN
     Dosage: 80 MG, DAILY
     Route: 048
     Dates: start: 20080611, end: 20080612
  2. OXY/NALOXONE VS OXYCODONE [Suspect]
     Dosage: 40 MG, DAILY
     Route: 048
     Dates: start: 20080610, end: 20080610
  3. VIGANTOL                           /00318501/ [Concomitant]
  4. ZOMETA [Concomitant]
  5. XELODA [Concomitant]

REACTIONS (2)
  - ABDOMINAL PAIN [None]
  - MALIGNANT NEOPLASM PROGRESSION [None]
